FAERS Safety Report 9952837 (Version 1)
Quarter: 2014Q1

REPORT INFORMATION
  Report Type: Report from Study
  Country: US (occurrence: US)
  Receive Date: 20140304
  Receipt Date: 20140304
  Transmission Date: 20141002
  Serious: No
  Sender: FDA-Public Use
  Company Number: US-ABBVIE-13P-163-1074667-00

PATIENT
  Age: 35 Year
  Sex: Female

DRUGS (15)
  1. HUMIRA [Suspect]
     Indication: RHEUMATOID ARTHRITIS
     Dates: start: 201303
  2. INDOCIN [Concomitant]
     Indication: RHEUMATOID ARTHRITIS
  3. FOLIC ACID [Concomitant]
     Indication: RHEUMATOID ARTHRITIS
  4. PREDNISONE [Concomitant]
     Indication: RHEUMATOID ARTHRITIS
  5. METHOTREXATE [Concomitant]
     Indication: RHEUMATOID ARTHRITIS
     Dosage: 8 WEEKLY
  6. ALLOPURINOL [Concomitant]
     Indication: GOUT
  7. ZOLOFT [Concomitant]
     Indication: DEPRESSION
  8. ZOLOFT [Concomitant]
     Indication: ANXIETY
  9. XANAX [Concomitant]
     Indication: ANXIETY
     Dosage: UP TO 2 TIMES PER DAY
  10. MEVACOR [Concomitant]
     Indication: BLOOD CHOLESTEROL
  11. TIZANIDINE [Concomitant]
     Indication: MUSCLE SPASMS
  12. AMBIEN [Concomitant]
     Indication: INSOMNIA
     Dosage: AT NIGHT
  13. LORATAB [Concomitant]
     Indication: PAIN
     Dosage: UP TO 3 TIMES PER DAY
  14. TRAMADOL [Concomitant]
     Indication: PAIN
  15. ZOFRAN [Concomitant]
     Indication: NAUSEA

REACTIONS (1)
  - Injection site bruising [Not Recovered/Not Resolved]
